FAERS Safety Report 15214515 (Version 2)
Quarter: 2018Q3

REPORT INFORMATION
  Report Type: Report from Study
  Country: None (occurrence: PT)
  Receive Date: 20180730
  Receipt Date: 20180815
  Transmission Date: 20181010
  Serious: Yes (Other)
  Sender: FDA-Public Use
  Company Number: PT-ABBVIE-18K-130-2434241-00

PATIENT
  Sex: Female

DRUGS (4)
  1. SODOLAC [Concomitant]
     Indication: ARTHRITIS
     Dosage: 1 AT NIGHT
     Route: 048
  2. PRETERAX [Concomitant]
     Active Substance: INDAPAMIDE\PERINDOPRIL
     Indication: HYPERTENSION
     Dosage: 5MG + 1.25MG IN THE MORNING
     Route: 048
  3. HUMIRA [Suspect]
     Active Substance: ADALIMUMAB
     Indication: PSORIATIC ARTHROPATHY
     Route: 058
     Dates: start: 20180122
  4. FLEXIBAN [Concomitant]
     Indication: ARTHRITIS
     Dosage: AT NIGHT
     Route: 048

REACTIONS (2)
  - Ear infection fungal [Recovered/Resolved]
  - Ear injury [Unknown]

NARRATIVE: CASE EVENT DATE: 2018
